FAERS Safety Report 5926894-6 (Version None)
Quarter: 2008Q4

REPORT INFORMATION
  Report Type: 
  Country: None (occurrence: None)
  Receive Date: 20081022
  Receipt Date: 20081013
  Transmission Date: 20090506
  Serious: Yes (Hospitalization, Other)
  Sender: FDA-Public Use
  Company Number: GB-BAXTER-2008BH010897

PATIENT
  Age: 74 Year
  Sex: Female

DRUGS (8)
  1. CYCLOPHOSPHAMIDE [Suspect]
     Indication: CHRONIC LYMPHOCYTIC LEUKAEMIA
     Dosage: DOSE UNIT:UNKNOWN
     Route: 065
     Dates: start: 20080101
  2. ALEMTUZUMAB [Suspect]
     Indication: CHRONIC LYMPHOCYTIC LEUKAEMIA
     Dosage: DOSE UNIT:UNKNOWN
     Route: 065
     Dates: start: 20080826
  3. FLUDARABINE PHOSPHATE [Suspect]
     Indication: CHRONIC LYMPHOCYTIC LEUKAEMIA
     Dosage: DOSE UNIT:UNKNOWN
     Route: 065
     Dates: start: 20080101
  4. ACYCLOVIR [Concomitant]
     Indication: PROPHYLAXIS
  5. CHLORAMBUCIL [Concomitant]
     Indication: CHRONIC LYMPHOCYTIC LEUKAEMIA
  6. CO-TRIMOXAZOLE [Concomitant]
     Indication: PROPHYLAXIS
  7. DEXAMETHASONE [Concomitant]
     Indication: PLATELET COUNT DECREASED
     Dates: end: 20080826
  8. PREDNISOLONE [Concomitant]
     Indication: PLATELET COUNT DECREASED

REACTIONS (3)
  - DRUG INEFFECTIVE [None]
  - LYMPHOCYTE COUNT DECREASED [None]
  - PANCYTOPENIA [None]
